FAERS Safety Report 24878464 (Version 1)
Quarter: 2025Q1

REPORT INFORMATION
  Report Type: Spontaneous
  Country: CN (occurrence: CN)
  Receive Date: 20250123
  Receipt Date: 20250123
  Transmission Date: 20250409
  Serious: Yes (Other)
  Sender: PFIZER
  Company Number: CN-PFIZER INC-202500013062

PATIENT
  Age: 50 Year
  Sex: Female

DRUGS (1)
  1. LORBRENA [Suspect]
     Active Substance: LORLATINIB
     Dosage: 100 MG, 1X/DAY
     Route: 048
     Dates: start: 202411

REACTIONS (6)
  - Pericardial effusion [Unknown]
  - Pleural effusion [Unknown]
  - Weight increased [Unknown]
  - Chest discomfort [Unknown]
  - Oedema peripheral [Unknown]
  - Neoplasm progression [Unknown]

NARRATIVE: CASE EVENT DATE: 20241201
